FAERS Safety Report 24602463 (Version 1)
Quarter: 2024Q4

REPORT INFORMATION
  Report Type: Spontaneous
  Country: US (occurrence: US)
  Receive Date: 20241111
  Receipt Date: 20241111
  Transmission Date: 20250115
  Serious: Yes (Hospitalization, Other)
  Sender: EPIC PHARM
  Company Number: US-EPICPHARMA-US-2024EPCLIT01380

PATIENT
  Sex: Female
  Weight: 22 kg

DRUGS (3)
  1. TERBUTALINE SULFATE [Suspect]
     Active Substance: TERBUTALINE SULFATE
     Indication: Bronchial hyperreactivity
     Dosage: 220 UG(10 UG/KG)
     Route: 042
  2. TERBUTALINE SULFATE [Suspect]
     Active Substance: TERBUTALINE SULFATE
     Dosage: 10000 UG (454.5 UG/KG)
     Route: 040
  3. ALBUTEROL [Concomitant]
     Active Substance: ALBUTEROL
     Route: 065

REACTIONS (5)
  - Hypokalaemia [Recovered/Resolved]
  - Hyperlactacidaemia [Recovered/Resolved]
  - Pulse pressure increased [Recovered/Resolved]
  - Accidental overdose [Unknown]
  - Product use in unapproved indication [Unknown]
